FAERS Safety Report 9759577 (Version 2)
Quarter: 2015Q3

REPORT INFORMATION
  Report Type: Spontaneous
  Country: US (occurrence: US)
  Receive Date: 20131216
  Receipt Date: 20150805
  Transmission Date: 20151125
  Serious: No
  Sender: FDA-Public Use
  Company Number: US-GILEAD-2010-0028089

PATIENT
  Age: 49 Year
  Sex: Female

DRUGS (17)
  1. AMBIEN [Concomitant]
     Active Substance: ZOLPIDEM TARTRATE
  2. TYLENOL [Concomitant]
     Active Substance: ACETAMINOPHEN
  3. ASMANEX [Concomitant]
     Active Substance: MOMETASONE FUROATE
  4. ABILIFY [Concomitant]
     Active Substance: ARIPIPRAZOLE
  5. LISINOPRIL. [Concomitant]
     Active Substance: LISINOPRIL
  6. KAPIDEX [Concomitant]
     Active Substance: DEXLANSOPRAZOLE
  7. SOMA [Concomitant]
     Active Substance: CARISOPRODOL
  8. TOPAMAX [Concomitant]
     Active Substance: TOPIRAMATE
  9. COREG [Concomitant]
     Active Substance: CARVEDILOL
  10. SAVELLA [Concomitant]
     Active Substance: MILNACIPRAN HYDROCHLORIDE
  11. MIRAPEX [Concomitant]
     Active Substance: PRAMIPEXOLE DIHYDROCHLORIDE
  12. ASPIRIN. [Concomitant]
     Active Substance: ASPIRIN
  13. WELLBUTRIN [Concomitant]
     Active Substance: BUPROPION HYDROCHLORIDE
  14. XANAX [Concomitant]
     Active Substance: ALPRAZOLAM
  15. IBUPROFEN. [Concomitant]
     Active Substance: IBUPROFEN
  16. GLUCOSAMINE [Concomitant]
     Active Substance: GLUCOSAMINE
  17. LETAIRIS [Suspect]
     Active Substance: AMBRISENTAN
     Indication: PULMONARY ARTERIAL HYPERTENSION
     Route: 048
     Dates: start: 20090305

REACTIONS (1)
  - Cough [Unknown]
